FAERS Safety Report 5897556-9 (Version None)
Quarter: 2008Q3

REPORT INFORMATION
  Report Type: 
  Country: None (occurrence: None)
  Receive Date: 20080829
  Receipt Date: 20080126
  Transmission Date: 20090109
  Serious: No
  Sender: FDA-Public Use
  Company Number: 023323

PATIENT
  Age: 23 Year
  Sex: Female
  Weight: 63.5 kg

DRUGS (1)
  1. PLAN B [Suspect]
     Indication: CONTRACEPTION
     Dosage: 1 TABLET, Q12HR, ORAL
     Route: 048
     Dates: start: 20080121, end: 20080121

REACTIONS (2)
  - DYSMENORRHOEA [None]
  - MENSTRUATION IRREGULAR [None]
